FAERS Safety Report 9140668 (Version 3)
Quarter: 2013Q2

REPORT INFORMATION
  Report Type: Spontaneous
  Country: JP (occurrence: JP)
  Receive Date: 20130305
  Receipt Date: 20130521
  Transmission Date: 20140414
  Serious: Yes (Other)
  Sender: FDA-Public Use
  Company Number: JP-GLAXOSMITHKLINE-B0855638A

PATIENT
  Age: 64 Year
  Sex: Female

DRUGS (7)
  1. SAMTIREL [Suspect]
     Indication: PNEUMOCYSTIS JIROVECII PNEUMONIA
     Dosage: 750MG TWICE PER DAY
     Route: 048
     Dates: start: 20121228, end: 20121229
  2. SAMTIREL [Suspect]
     Indication: PNEUMOCYSTIS JIROVECII PNEUMONIA
     Dosage: 750MG TWICE PER DAY
     Route: 048
     Dates: start: 20130109, end: 20130110
  3. NEOPAREN [Concomitant]
     Route: 042
     Dates: start: 20121225, end: 20130111
  4. FUTHAN [Concomitant]
     Indication: DISSEMINATED INTRAVASCULAR COAGULATION
     Route: 042
     Dates: start: 20121222, end: 20121231
  5. ORGARAN [Concomitant]
     Indication: DISSEMINATED INTRAVASCULAR COAGULATION
     Dosage: 1IUAX TWICE PER DAY
     Route: 042
     Dates: start: 20121222, end: 20121231
  6. MEROPEN [Concomitant]
     Dosage: .5G THREE TIMES PER DAY
     Route: 042
     Dates: start: 20121222, end: 20121231
  7. VANCOMYCIN [Concomitant]
     Dosage: 1G PER DAY
     Route: 042
     Dates: start: 20121221, end: 20121231

REACTIONS (5)
  - Vomiting [Not Recovered/Not Resolved]
  - Bronchospasm [Recovering/Resolving]
  - Regurgitation [Unknown]
  - Tachypnoea [Recovered/Resolved]
  - Blood pressure increased [Recovered/Resolved]
